FAERS Safety Report 11322597 (Version 1)
Quarter: 2015Q3

REPORT INFORMATION
  Report Type: Spontaneous
  Country: US (occurrence: None)
  Receive Date: 20150729
  Receipt Date: 20150729
  Transmission Date: 20151125
  Serious: Yes (Hospitalization)
  Sender: FDA-Public Use
  Company Number: None

PATIENT
  Age: 22 Year
  Sex: Female
  Weight: 89.6 kg

DRUGS (3)
  1. ETOPOSIDE (VP-16) [Suspect]
     Active Substance: ETOPOSIDE
     Dates: end: 20150710
  2. CISPLATIN. [Suspect]
     Active Substance: CISPLATIN
     Dates: end: 20150710
  3. BLEOMYCIN [Suspect]
     Active Substance: BLEOMYCIN SULFATE
     Dates: end: 20150706

REACTIONS (4)
  - Pyrexia [None]
  - Device related infection [None]
  - Staphylococcus test positive [None]
  - Chills [None]

NARRATIVE: CASE EVENT DATE: 20150721
